FAERS Safety Report 13044895 (Version 1)
Quarter: 2016Q4

REPORT INFORMATION
  Report Type: Spontaneous
  Country: US (occurrence: US)
  Receive Date: 20161220
  Receipt Date: 20161220
  Transmission Date: 20170207
  Serious: No
  Sender: FDA-Public Use
  Company Number: US-BIOGEN-2016BI00330609

PATIENT
  Sex: Female

DRUGS (1)
  1. TYSABRI [Suspect]
     Active Substance: NATALIZUMAB
     Indication: MULTIPLE SCLEROSIS
     Route: 065
     Dates: start: 20120721

REACTIONS (3)
  - Therapy cessation [Not Recovered/Not Resolved]
  - Paraesthesia [Recovered/Resolved with Sequelae]
  - Sensory disturbance [Recovered/Resolved with Sequelae]

NARRATIVE: CASE EVENT DATE: 2016
